FAERS Safety Report 5196617-X (Version None)
Quarter: 2007Q1

REPORT INFORMATION
  Report Type: 
  Country: None (occurrence: None)
  Receive Date: 20070103
  Receipt Date: 20061227
  Transmission Date: 20070707
  Serious: Yes (Other)
  Sender: FDA-Public Use
  Company Number: PHBS2006JP17235

PATIENT
  Age: 95 Year
  Sex: Female

DRUGS (3)
  1. DIOVAN [Suspect]
     Indication: HYPERTENSION
     Dosage: 40 MG, QD
     Route: 048
     Dates: start: 20060601
  2. NORVASC [Concomitant]
     Dosage: 5 MG, UNK
     Route: 048
  3. DICHLOTRIDE [Concomitant]

REACTIONS (1)
  - SYNCOPE [None]
